FAERS Safety Report 9617028 (Version 4)
Quarter: 2014Q3

REPORT INFORMATION
  Report Type: Report from Study
  Country: BR (occurrence: BR)
  Receive Date: 20131011
  Receipt Date: 20140727
  Transmission Date: 20150326
  Serious: Yes (Other)
  Sender: FDA-Public Use
  Company Number: PHHY2013BR103087

PATIENT
  Age: 66 Year
  Sex: Female

DRUGS (15)
  1. BUDESONIDE. [Suspect]
     Active Substance: BUDESONIDE
     Indication: BRONCHITIS
  2. ALENIA                             /01538101/ [Suspect]
     Active Substance: BUDESONIDE\FORMOTEROL FUMARATE
     Indication: BRONCHITIS
  3. BUDESONIDE. [Suspect]
     Active Substance: BUDESONIDE
     Indication: ASTHMA
     Dosage: 1 DF, BID (1 INHALATION IN THE MORNING AND 1 AT NIGHT)
     Route: 055
  4. BUDESONIDE. [Suspect]
     Active Substance: BUDESONIDE
     Indication: DYSPNOEA
  5. FORASEQ [Suspect]
     Active Substance: BUDESONIDE\FORMOTEROL FUMARATE
     Indication: OFF LABEL USE
  6. BUDESONIDE. [Suspect]
     Active Substance: BUDESONIDE
     Indication: PULMONARY OEDEMA
  7. ALENIA                             /01538101/ [Suspect]
     Active Substance: BUDESONIDE\FORMOTEROL FUMARATE
     Indication: ASTHMA
     Dosage: 1 DF, BID (1 TABLET IN THE MORNING AND 1 AT NIGHT)
     Route: 055
  8. FORASEQ [Suspect]
     Active Substance: BUDESONIDE\FORMOTEROL FUMARATE
     Indication: PULMONARY OEDEMA
     Dosage: UNK UKN, UNK
     Route: 055
  9. XOLAIR [Suspect]
     Active Substance: OMALIZUMAB
     Indication: BRONCHITIS
     Dosage: 2 DF, (AMPOULES) 1 TIME PER MONTH
     Route: 058
  10. XOLAIR [Suspect]
     Active Substance: OMALIZUMAB
     Indication: ASTHMA
  11. FORASEQ [Suspect]
     Active Substance: BUDESONIDE\FORMOTEROL FUMARATE
     Indication: BRONCHITIS
  12. XOLAIR [Suspect]
     Active Substance: OMALIZUMAB
     Indication: DYSPNOEA
  13. FORASEQ [Suspect]
     Active Substance: BUDESONIDE\FORMOTEROL FUMARATE
     Indication: ASTHMA
     Dosage: 1 DF, BID (1 INHALATION IN THE MORNING AND 1 AT NIGHT)
     Route: 055
     Dates: start: 200506
  14. FORASEQ [Suspect]
     Active Substance: BUDESONIDE\FORMOTEROL FUMARATE
     Indication: DYSPNOEA
  15. ALENIA                             /01538101/ [Suspect]
     Active Substance: BUDESONIDE\FORMOTEROL FUMARATE
     Indication: PULMONARY OEDEMA

REACTIONS (8)
  - Dyspnoea [Recovering/Resolving]
  - Pneumonia [Recovering/Resolving]
  - Lung disorder [Recovering/Resolving]
  - Oropharyngeal pain [Recovering/Resolving]
  - Influenza [Recovering/Resolving]
  - Bronchitis [Recovering/Resolving]
  - Malaise [Recovering/Resolving]
  - Nasopharyngitis [Recovering/Resolving]

NARRATIVE: CASE EVENT DATE: 20140718
